FAERS Safety Report 7961951-4 (Version None)
Quarter: 2011Q4

REPORT INFORMATION
  Report Type: 
  Country: None (occurrence: None)
  Receive Date: 20111207
  Receipt Date: 20111129
  Transmission Date: 20120403
  Serious: Yes (Hospitalization)
  Sender: FDA-Public Use
  Company Number: US-B.I. PHARMACEUTICALS,INC./RIDGEFIELD-2011-BP-23522BP

PATIENT
  Age: 61 Year
  Sex: Female
  Weight: 84.1 kg

DRUGS (8)
  1. TOPAMAX [Concomitant]
     Dosage: 25 MG
  2. PRADAXA [Suspect]
     Dosage: 150 MG
     Route: 048
     Dates: end: 20110302
  3. NEXIUM [Concomitant]
     Dosage: 40 MG
  4. LORATADINE [Concomitant]
     Dosage: 10 MG
  5. LIPITOR [Concomitant]
     Dosage: 20 MG
  6. TRAZODONE HCL [Concomitant]
     Dosage: 50 MG
  7. METOPROLOL TARTRATE [Concomitant]
     Dosage: 25 MG
  8. VESICARE [Concomitant]
     Dosage: 10 MG

REACTIONS (1)
  - ISCHAEMIC STROKE [None]
